FAERS Safety Report 10228986 (Version 4)
Quarter: 2014Q3

REPORT INFORMATION
  Report Type: Spontaneous
  Country: SE (occurrence: SE)
  Receive Date: 20140610
  Receipt Date: 20140925
  Transmission Date: 20150326
  Serious: Yes (Other)
  Sender: FDA-Public Use
  Company Number: SE-GLAXOSMITHKLINE-B1001818A

PATIENT
  Sex: Female
  Weight: 78 kg

DRUGS (8)
  1. BEHEPAN [Concomitant]
     Active Substance: HYDROXOCOBALAMIN
     Dosage: 1MG PER DAY
  2. KALCIPOS D [Concomitant]
     Indication: COW^S MILK INTOLERANCE
     Dosage: 500MG PER DAY
  3. ENALAPRIL [Concomitant]
     Active Substance: ENALAPRIL
     Indication: BLOOD PRESSURE
     Dosage: 5MG PER DAY
  4. LEVAXIN [Concomitant]
     Active Substance: LEVOTHYROXINE SODIUM
     Indication: HYPERTHYROIDISM
     Dosage: 150MG PER DAY
  5. RYTMONORM [Suspect]
     Active Substance: PROPAFENONE
     Indication: ATRIAL FIBRILLATION
     Dosage: 300MG TWICE PER DAY
     Route: 065
  6. CITALOPRAM [Concomitant]
     Active Substance: CITALOPRAM HYDROBROMIDE
     Indication: PANIC DISORDER
     Dosage: 10MG PER DAY
  7. WARAN [Concomitant]
     Active Substance: WARFARIN SODIUM
     Indication: ATRIAL FIBRILLATION
  8. METOPROLOL [Concomitant]
     Active Substance: METOPROLOL
     Indication: ATRIAL FIBRILLATION

REACTIONS (9)
  - Peripheral swelling [Unknown]
  - Product quality issue [Unknown]
  - Malaise [Unknown]
  - Hyperhidrosis [Unknown]
  - Dizziness [Unknown]
  - Atrial fibrillation [Recovered/Resolved]
  - Feeling cold [Unknown]
  - Fatigue [Unknown]
  - Agitation [Unknown]

NARRATIVE: CASE EVENT DATE: 2014
